FAERS Safety Report 4637297-9 (Version None)
Quarter: 2005Q2

REPORT INFORMATION
  Report Type: 
  Country: None (occurrence: None)
  Receive Date: 20050328
  Receipt Date: 20041129
  Transmission Date: 20051028
  Serious: No
  Sender: FDA-Public Use
  Company Number: USA041184678

PATIENT
  Age: 7 Year
  Sex: Female
  Weight: 32 kg

DRUGS (3)
  1. STRATTERA [Suspect]
     Dosage: 40 MG DAY
     Dates: start: 20041123
  2. CLARITIN [Concomitant]
  3. RHINOCORT AQUA (BUDESONIDE) [Concomitant]

REACTIONS (3)
  - FATIGUE [None]
  - PRESCRIBED OVERDOSE [None]
  - SOMNOLENCE [None]
